FAERS Safety Report 16350619 (Version 1)
Quarter: 2019Q2

REPORT INFORMATION
  Report Type: Other
  Country: None (occurrence: CN)
  Receive Date: 20190524
  Receipt Date: 20190524
  Transmission Date: 20190711
  Serious: Yes (Other)
  Sender: FDA-Public Use
  Company Number: CN-SHANGHAI HENGRUI PHARMACEUTICAL CO., LTD.-2067410

PATIENT
  Age: 23 Year
  Sex: Male
  Weight: 15 kg

DRUGS (6)
  1. PROPOFOL INJECTABLE EMULSION [Suspect]
     Active Substance: PROPOFOL
  2. SUFENTANIL CITRATE INJECTION USP [Suspect]
     Active Substance: SUFENTANIL CITRATE
  3. CISATRACURIUM BESILATE FOR INJECTION [Suspect]
     Active Substance: CISATRACURIUM BESYLATE
  4. DEXMEDETOMIDINE HYDROCHLORIDE INJECTION [Concomitant]
     Active Substance: DEXMEDETOMIDINE HYDROCHLORIDE
  5. SEVOFLURANE USP, 100%, LIQUID FOR INHALATION [Suspect]
     Active Substance: SEVOFLURANE
     Indication: ANAESTHESIA
     Dates: start: 20190505, end: 20190505
  6. TROPISETRON MESYLATE LNJECTION [Concomitant]

REACTIONS (3)
  - Oedema [Recovered/Resolved]
  - Erythema [Recovered/Resolved]
  - Rash maculo-papular [Recovered/Resolved]

NARRATIVE: CASE EVENT DATE: 20190505
